FAERS Safety Report 15960475 (Version 2)
Quarter: 2019Q1

REPORT INFORMATION
  Report Type: Spontaneous
  Country: US (occurrence: US)
  Receive Date: 20190214
  Receipt Date: 20190304
  Transmission Date: 20190417
  Serious: No
  Sender: FDA-Public Use
  Company Number: US-LUPIN PHARMACEUTICALS INC.-2019-00492

PATIENT
  Age: 56 Year
  Sex: Female
  Weight: 124.72 kg

DRUGS (1)
  1. GAVILYTE - N [Suspect]
     Active Substance: POLYETHYLENE GLYCOL 3350\POTASSIUM CHLORIDE\SODIUM BICARBONATE\SODIUM CHLORIDE
     Indication: COLONOSCOPY
     Dosage: 420 G, QD
     Route: 048
     Dates: start: 20190120, end: 20190120

REACTIONS (5)
  - Blood glucose decreased [Recovered/Resolved]
  - Chills [Recovered/Resolved]
  - Feeling abnormal [Unknown]
  - Pyrexia [Recovered/Resolved]
  - Vomiting [Recovered/Resolved]

NARRATIVE: CASE EVENT DATE: 20190120
